FAERS Safety Report 4693353-0 (Version None)
Quarter: 2005Q2

REPORT INFORMATION
  Report Type: 
  Country: None (occurrence: None)
  Receive Date: 20050615
  Receipt Date: 20050527
  Transmission Date: 20051028
  Serious: Yes (Hospitalization, Other)
  Sender: FDA-Public Use
  Company Number: USA050495632

PATIENT
  Age: 17 Year
  Sex: Female
  Weight: 50 kg

DRUGS (2)
  1. CYMBALTA [Suspect]
     Indication: DEPRESSION
     Dosage: 60 MG DAY
     Dates: start: 20050201, end: 20050413
  2. YASMIN [Concomitant]

REACTIONS (18)
  - AGITATION [None]
  - AURA [None]
  - CONFUSIONAL STATE [None]
  - CYANOSIS [None]
  - DRUG ABUSER [None]
  - FAECAL INCONTINENCE [None]
  - FATIGUE [None]
  - GRAND MAL CONVULSION [None]
  - HEART RATE INCREASED [None]
  - INCREASED UPPER AIRWAY SECRETION [None]
  - LOSS OF CONSCIOUSNESS [None]
  - MYALGIA [None]
  - MYDRIASIS [None]
  - POSTICTAL HEADACHE [None]
  - POSTICTAL STATE [None]
  - RESPIRATORY DISORDER [None]
  - SLEEP DISORDER [None]
  - URINARY INCONTINENCE [None]
